FAERS Safety Report 7432701-5 (Version None)
Quarter: 2011Q2

REPORT INFORMATION
  Report Type: 
  Country: None (occurrence: None)
  Receive Date: 20110422
  Receipt Date: 20110413
  Transmission Date: 20111010
  Serious: Yes (Hospitalization)
  Sender: FDA-Public Use
  Company Number: US-ROCHE-771229

PATIENT
  Sex: Female

DRUGS (9)
  1. AMBIEN [Concomitant]
  2. CLONAZEPAM [Suspect]
     Route: 065
  3. PROZAC [Concomitant]
  4. OXCARBAZEPINE [Concomitant]
  5. PEGINTERFERON ALFA-2A [Suspect]
     Indication: HEPATITIS C
     Dosage: FORM: PRE FILLED SYRINGE
     Route: 065
     Dates: start: 20101019
  6. DIAZEPAM [Suspect]
     Route: 065
  7. SAPHRIS [Concomitant]
  8. RIBAVARIN [Suspect]
     Indication: HEPATITIS C
     Dosage: IN DIVIDED DOSES.
     Route: 065
     Dates: start: 20101019
  9. RIBAVARIN [Suspect]
     Route: 065

REACTIONS (5)
  - MUSCULOSKELETAL DISCOMFORT [None]
  - PNEUMONIA [None]
  - NAUSEA [None]
  - ANAEMIA [None]
  - ABDOMINAL DISCOMFORT [None]
